FAERS Safety Report 7997110-9 (Version None)
Quarter: 2011Q4

REPORT INFORMATION
  Report Type: 
  Country: None (occurrence: None)
  Receive Date: 20111216
  Receipt Date: 20111205
  Transmission Date: 20120403
  Serious: Yes (Other)
  Sender: FDA-Public Use
  Company Number: 2011MA017439

PATIENT
  Age: 39 Year
  Sex: Male

DRUGS (2)
  1. CARBAMAZEPINE [Suspect]
     Indication: ALCOHOL WITHDRAWAL SYNDROME
  2. FLUOXETINE HYDROCHLORIDE [Suspect]
     Indication: ALCOHOL WITHDRAWAL SYNDROME

REACTIONS (1)
  - ORAL LICHEN PLANUS [None]
